FAERS Safety Report 15832560 (Version 1)
Quarter: 2019Q1

REPORT INFORMATION
  Report Type: Spontaneous
  Country: US (occurrence: US)
  Receive Date: 20190116
  Receipt Date: 20190116
  Transmission Date: 20190417
  Serious: Yes (Hospitalization)
  Sender: FDA-Public Use
  Company Number: None

PATIENT
  Sex: Female

DRUGS (42)
  1. ARMOUR THYROID [Concomitant]
     Active Substance: THYROID, PORCINE
  2. RESTASIS [Concomitant]
     Active Substance: CYCLOSPORINE
  3. ONDANSETRON [Concomitant]
     Active Substance: ONDANSETRON
  4. SOLU-CORTEF [Concomitant]
     Active Substance: HYDROCORTISONE SODIUM SUCCINATE
  5. CELECOXIB. [Concomitant]
     Active Substance: CELECOXIB
  6. SINGULAIR [Concomitant]
     Active Substance: MONTELUKAST SODIUM
  7. ESOMEPRAZOLE. [Concomitant]
     Active Substance: ESOMEPRAZOLE MAGNESIUM
  8. HYOSCYAMINE. [Concomitant]
     Active Substance: HYOSCYAMINE
  9. VENTOLIN [Concomitant]
     Active Substance: ALBUTEROL SULFATE
  10. ALENDRONATE [Concomitant]
     Active Substance: ALENDRONATE SODIUM
  11. SAVELLA [Concomitant]
     Active Substance: MILNACIPRAN HYDROCHLORIDE
  12. ROPINEROLE [Concomitant]
     Active Substance: ROPINIROLE
  13. PREMARIN [Concomitant]
     Active Substance: ESTROGENS, CONJUGATED
  14. FLUDROCORTISON [Concomitant]
     Active Substance: FLUDROCORTISONE
  15. FOLIC ACID. [Concomitant]
     Active Substance: FOLIC ACID
  16. NEXIUM [Concomitant]
     Active Substance: ESOMEPRAZOLE MAGNESIUM
  17. AIMOVIG [Concomitant]
     Active Substance: ERENUMAB-AOOE
  18. PROGESTERONE. [Concomitant]
     Active Substance: PROGESTERONE
  19. POT CL MICRO 20 MEQ [Concomitant]
     Active Substance: POTASSIUM CHLORIDE
  20. FEROSUL [Concomitant]
  21. OTREXUP [Concomitant]
     Active Substance: METHOTREXATE
  22. LYRICA [Concomitant]
     Active Substance: PREGABALIN
  23. HUMIRA [Suspect]
     Active Substance: ADALIMUMAB
     Indication: PSORIATIC ARTHROPATHY
     Dosage: ?          OTHER FREQUENCY:QWK;?
     Route: 058
     Dates: start: 20180520
  24. SUMAT-NAPROX [Concomitant]
  25. OXYCODONE AND ACETAMINOPHEN [Concomitant]
     Active Substance: ACETAMINOPHEN\OXYCODONE HYDROCHLORIDE
  26. MONTELUKAST [Concomitant]
     Active Substance: MONTELUKAST SODIUM
  27. TOPAMAX [Concomitant]
     Active Substance: TOPIRAMATE
  28. DOK [Concomitant]
     Active Substance: DOCUSATE SODIUM
  29. ENBREL [Concomitant]
     Active Substance: ETANERCEPT
  30. A-HYDROCORT [Concomitant]
     Active Substance: HYDROCORTISONE SODIUM SUCCINATE
  31. LEVOCETIRIZINE [Concomitant]
     Active Substance: LEVOCETIRIZINE
  32. LEVOTHYROXINE. [Concomitant]
     Active Substance: LEVOTHYROXINE
  33. ACARBOSE. [Concomitant]
     Active Substance: ACARBOSE
  34. DYMISTA [Concomitant]
     Active Substance: AZELASTINE HYDROCHLORIDE\FLUTICASONE PROPIONATE
  35. ESTRADIOL. [Concomitant]
     Active Substance: ESTRADIOL
  36. FLUOXETINE [Concomitant]
     Active Substance: FLUOXETINE HYDROCHLORIDE
  37. MYRBETRIQ [Concomitant]
     Active Substance: MIRABEGRON
  38. MORPHINE [Concomitant]
     Active Substance: MORPHINE
  39. ADVAIR HFA [Concomitant]
     Active Substance: FLUTICASONE PROPIONATE\SALMETEROL XINAFOATE
  40. CIPROFLOXACIN. [Concomitant]
     Active Substance: CIPROFLOXACIN
  41. FUROSEMIDE. [Concomitant]
     Active Substance: FUROSEMIDE
  42. GABAPENTIN. [Concomitant]
     Active Substance: GABAPENTIN

REACTIONS (2)
  - Therapy cessation [None]
  - Ill-defined disorder [None]
